FAERS Safety Report 12579297 (Version 2)
Quarter: 2016Q3

REPORT INFORMATION
  Report Type: Spontaneous
  Country: CY (occurrence: CY)
  Receive Date: 20160721
  Receipt Date: 20160802
  Transmission Date: 20161109
  Serious: Yes (Other)
  Sender: FDA-Public Use
  Company Number: CY-BAXTER-2016BAX038184

PATIENT
  Age: 77 Year
  Sex: Female

DRUGS (14)
  1. TAXOL [Suspect]
     Active Substance: PACLITAXEL
     Indication: BREAST CANCER METASTATIC
     Dosage: 3 CYCLES
     Route: 065
     Dates: start: 201508, end: 201510
  2. ENDOXAN 1000 MG - POWDER FOR SOLUTION FOR INJECTION [Suspect]
     Active Substance: CYCLOPHOSPHAMIDE
     Indication: BREAST CANCER METASTATIC
     Dosage: 3 CYCLES OF AC
     Route: 065
     Dates: start: 201002, end: 201004
  3. ENDOXAN 1000 MG - POWDER FOR SOLUTION FOR INJECTION [Suspect]
     Active Substance: CYCLOPHOSPHAMIDE
     Indication: INVASIVE LOBULAR BREAST CARCINOMA
  4. EXEMESTANE. [Suspect]
     Active Substance: EXEMESTANE
     Indication: INVASIVE LOBULAR BREAST CARCINOMA
     Dosage: REGIMEN# 2
     Route: 065
  5. AFINITOR [Suspect]
     Active Substance: EVEROLIMUS
     Indication: INVASIVE LOBULAR BREAST CARCINOMA
     Dosage: REDUCED DOSE, REGIMEN# 2
     Route: 065
  6. TAMOXIFEN [Suspect]
     Active Substance: TAMOXIFEN
     Indication: BREAST CANCER METASTATIC
     Route: 065
     Dates: start: 201004, end: 201307
  7. ARIMIDEX [Suspect]
     Active Substance: ANASTROZOLE
     Indication: BREAST CANCER METASTATIC
     Route: 065
     Dates: start: 201307, end: 201506
  8. DOXORUBICIN HCL [Suspect]
     Active Substance: DOXORUBICIN HYDROCHLORIDE
     Indication: BREAST CANCER METASTATIC
     Dosage: 3 CYCLES OF AC
     Route: 065
     Dates: start: 201002, end: 201004
  9. DOXORUBICIN HCL [Suspect]
     Active Substance: DOXORUBICIN HYDROCHLORIDE
     Indication: INVASIVE LOBULAR BREAST CARCINOMA
  10. AFINITOR [Suspect]
     Active Substance: EVEROLIMUS
     Indication: BREAST CANCER METASTATIC
     Dosage: REGIMEN# 1
     Route: 065
     Dates: start: 201511, end: 201603
  11. TAMOXIFEN [Suspect]
     Active Substance: TAMOXIFEN
     Indication: INVASIVE LOBULAR BREAST CARCINOMA
  12. TAXOL [Suspect]
     Active Substance: PACLITAXEL
     Indication: INVASIVE LOBULAR BREAST CARCINOMA
  13. ARIMIDEX [Suspect]
     Active Substance: ANASTROZOLE
     Indication: INVASIVE LOBULAR BREAST CARCINOMA
  14. EXEMESTANE. [Suspect]
     Active Substance: EXEMESTANE
     Indication: BREAST CANCER METASTATIC
     Dosage: REGIMEN# 1
     Route: 065
     Dates: start: 201511, end: 201603

REACTIONS (7)
  - Ventricular extrasystoles [Unknown]
  - Activated partial thromboplastin time shortened [Unknown]
  - Adverse drug reaction [Unknown]
  - Drug ineffective [Unknown]
  - Blood calcium increased [Unknown]
  - Blood alkaline phosphatase increased [Unknown]
  - Blood iron decreased [Unknown]

NARRATIVE: CASE EVENT DATE: 20160513
